FAERS Safety Report 5481756-6 (Version None)
Quarter: 2007Q4

REPORT INFORMATION
  Report Type: 
  Country: None (occurrence: None)
  Receive Date: 20071010
  Receipt Date: 20070814
  Transmission Date: 20080405
  Serious: Yes (Other)
  Sender: FDA-Public Use
  Company Number: US-PURDUE-USA_2007_0029012

PATIENT
  Sex: Male
  Weight: 109 kg

DRUGS (1)
  1. OXYCONTIN [Suspect]
     Indication: INTERVERTEBRAL DISC DEGENERATION
     Dosage: UNK MG, UNK
     Route: 048
     Dates: start: 19990802

REACTIONS (23)
  - ACCIDENTAL OVERDOSE [None]
  - AMNESIA [None]
  - ANHEDONIA [None]
  - ANTISOCIAL BEHAVIOUR [None]
  - ANXIETY [None]
  - CONFUSIONAL STATE [None]
  - CONSTIPATION [None]
  - DEPRESSION [None]
  - DISORIENTATION [None]
  - DISTURBANCE IN ATTENTION [None]
  - DRUG DEPENDENCE [None]
  - DYSPNOEA [None]
  - HALLUCINATION [None]
  - HOSTILITY [None]
  - HYPOTENSION [None]
  - LOSS OF CONSCIOUSNESS [None]
  - MORBID THOUGHTS [None]
  - NAUSEA [None]
  - OEDEMA [None]
  - PAIN [None]
  - PANIC ATTACK [None]
  - PRURITUS [None]
  - TREMOR [None]
